FAERS Safety Report 18898734 (Version 1)
Quarter: 2021Q1

REPORT INFORMATION
  Report Type: Spontaneous
  Country: US (occurrence: US)
  Receive Date: 20210212
  Receipt Date: 20210212
  Transmission Date: 20210420
  Serious: Yes (Disabling, Other)
  Sender: FDA-Public Use
  Company Number: None

PATIENT
  Age: 44 Year
  Sex: Male
  Weight: 87.75 kg

DRUGS (3)
  1. MANUKA HONEY SINUS CLEANSER [Suspect]
     Active Substance: HERBALS\HONEY
     Indication: SINUSITIS
     Dosage: ?          QUANTITY:2 SPRAY(S);?
     Route: 055
     Dates: start: 20210110, end: 20210131
  2. PROZAC [Concomitant]
     Active Substance: FLUOXETINE HYDROCHLORIDE
  3. WELLBUTRIN [Concomitant]
     Active Substance: BUPROPION HYDROCHLORIDE

REACTIONS (7)
  - Oropharyngeal pain [None]
  - Rhinitis [None]
  - Oral infection [None]
  - Headache [None]
  - Upper-airway cough syndrome [None]
  - Nasal congestion [None]
  - Fatigue [None]

NARRATIVE: CASE EVENT DATE: 20210110
